FAERS Safety Report 15868358 (Version 1)
Quarter: 2019Q1

REPORT INFORMATION
  Report Type: Report from Study
  Country: FR (occurrence: FR)
  Receive Date: 20190125
  Receipt Date: 20190125
  Transmission Date: 20190417
  Serious: Yes (Death)
  Sender: FDA-Public Use
  Company Number: FR-PFIZER INC-0003941203PHAMED

PATIENT

DRUGS (4)
  1. IDARUBICIN HCL [Suspect]
     Active Substance: IDARUBICIN HYDROCHLORIDE
     Dosage: 20 MG/M2, CYCLIC FOR 2 DAYS
     Route: 048
  2. CYTOSAR-U [Suspect]
     Active Substance: CYTARABINE
     Dosage: 10 MG/M2, 2X/DAY (LOW DOSE)(5 CONSECUTIVE DAYS)
     Route: 058
  3. CYTOSAR-U [Suspect]
     Active Substance: CYTARABINE
     Indication: ACUTE MYELOID LEUKAEMIA
     Dosage: 10 MG/M2, 2X/DAY (LOW DOSE, DL-D10)
     Route: 058
  4. IDARUBICIN HCL [Suspect]
     Active Substance: IDARUBICIN HYDROCHLORIDE
     Indication: ACUTE MYELOID LEUKAEMIA
     Dosage: 20 MG/M2, DAILY (DL-D3)
     Route: 048

REACTIONS (2)
  - Meningitis bacterial [Fatal]
  - Aplasia [Fatal]
